FAERS Safety Report 19655667 (Version 1)
Quarter: 2021Q3

REPORT INFORMATION
  Report Type: Spontaneous
  Country: US (occurrence: US)
  Receive Date: 20210804
  Receipt Date: 20210804
  Transmission Date: 20211014
  Serious: No
  Sender: FDA-Public Use
  Company Number: US-ASTRAZENECA-2021A614814

PATIENT
  Age: 12973 Day
  Sex: Female
  Weight: 85.3 kg

DRUGS (1)
  1. FASENRA [Suspect]
     Active Substance: BENRALIZUMAB
     Indication: ASTHMA
     Route: 058
     Dates: start: 202102, end: 20210709

REACTIONS (1)
  - Blood immunoglobulin E abnormal [Not Recovered/Not Resolved]

NARRATIVE: CASE EVENT DATE: 20210708
